FAERS Safety Report 5683213-0 (Version None)
Quarter: 2008Q1

REPORT INFORMATION
  Report Type: 
  Country: None (occurrence: None)
  Receive Date: 20080327
  Receipt Date: 20080324
  Transmission Date: 20080703
  Serious: Yes (Hospitalization)
  Sender: FDA-Public Use
  Company Number: BR-ASTRAZENECA-2008UW05992

PATIENT
  Age: 76 Year
  Sex: Female
  Weight: 65 kg

DRUGS (3)
  1. SEROQUEL [Suspect]
     Indication: CONFUSIONAL STATE
     Route: 048
     Dates: start: 20070301, end: 20080301
  2. RISPERDAL [Concomitant]
  3. EFESOR [Concomitant]

REACTIONS (3)
  - CONVULSION [None]
  - GASTRIC HAEMORRHAGE [None]
  - SOMNOLENCE [None]
